FAERS Safety Report 4982925-1 (Version None)
Quarter: 2006Q2

REPORT INFORMATION
  Report Type: 
  Country: None (occurrence: None)
  Receive Date: 20060420
  Receipt Date: 20060411
  Transmission Date: 20061013
  Serious: Yes (Other)
  Sender: FDA-Public Use
  Company Number: 163-21880-06030379

PATIENT
  Age: 59 Year
  Sex: Male

DRUGS (5)
  1. REVLIMID [Suspect]
     Indication: MYELODYSPLASTIC SYNDROME
     Dosage: 10 MG, DAILY, ORAL
     Route: 048
     Dates: start: 20060210, end: 20060307
  2. ALBUTEROL [Concomitant]
  3. ADVAIR DISKUS (SERETIDE MITE) [Concomitant]
  4. COMBIVENT [Concomitant]
  5. PRILOSEC [Concomitant]

REACTIONS (2)
  - BLOOD COUNT ABNORMAL [None]
  - NEUTROPENIA [None]
